FAERS Safety Report 21120447 (Version 1)
Quarter: 2022Q3

REPORT INFORMATION
  Report Type: Spontaneous
  Country: US (occurrence: None)
  Receive Date: 20220722
  Receipt Date: 20220722
  Transmission Date: 20221027
  Serious: Yes (Other)
  Sender: FDA-Public Use
  Company Number: US-ROCHE-3138929

PATIENT
  Sex: Male

DRUGS (2)
  1. CELLCEPT [Suspect]
     Active Substance: MYCOPHENOLATE MOFETIL
     Indication: Product used for unknown indication
     Route: 065
  2. SOLIRIS [Suspect]
     Active Substance: ECULIZUMAB
     Indication: Myasthenia gravis
     Route: 065

REACTIONS (8)
  - Renal impairment [Unknown]
  - Wound [Unknown]
  - Malaise [Unknown]
  - Skin ulcer [Unknown]
  - Localised infection [Unknown]
  - Feeling abnormal [Unknown]
  - Bradyphrenia [Unknown]
  - Therapeutic response shortened [Unknown]
